FAERS Safety Report 8642675 (Version 3)
Quarter: 2012Q4

REPORT INFORMATION
  Report Type: 
  Country: BN (occurrence: BN)
  Receive Date: 20120629
  Receipt Date: 20121123
  Transmission Date: 20130627
  Serious: Yes (Other)
  Sender: FDA-Public Use
  Company Number: BN-RANBAXY-2012RR-57337

PATIENT
  Age: 45 Year
  Sex: Female

DRUGS (1)
  1. DOXYCYCLINE [Suspect]
     Indication: MASTITIS
     Dosage: 100 mg/day
     Route: 065

REACTIONS (1)
  - Oesophageal ulcer [Recovered/Resolved]
